FAERS Safety Report 8250397-X (Version None)
Quarter: 2012Q2

REPORT INFORMATION
  Report Type: 
  Country: None (occurrence: None)
  Receive Date: 20120402
  Receipt Date: 20120326
  Transmission Date: 20120825
  Serious: Yes (Hospitalization, Other)
  Sender: FDA-Public Use
  Company Number: JP-JNJFOC-20111111881

PATIENT
  Sex: Male
  Weight: 45 kg

DRUGS (5)
  1. MEROPENEM [Concomitant]
     Indication: PNEUMONIA BACTERIAL
     Route: 041
     Dates: start: 20110501, end: 20110504
  2. TEICOPLANIN [Concomitant]
     Indication: BRONCHOPULMONARY ASPERGILLOSIS
     Route: 041
     Dates: start: 20110504, end: 20110510
  3. ITRACONAZOLE [Suspect]
     Indication: BRONCHOPULMONARY ASPERGILLOSIS
     Route: 041
     Dates: start: 20110420, end: 20110511
  4. TEICOPLANIN [Concomitant]
     Indication: PNEUMONIA BACTERIAL
     Route: 041
     Dates: start: 20110504, end: 20110510
  5. LEVOFLOXACIN [Concomitant]
     Indication: PNEUMONIA BACTERIAL
     Route: 041
     Dates: start: 20110428, end: 20110501

REACTIONS (2)
  - PULMONARY ALVEOLAR HAEMORRHAGE [None]
  - SINUS BRADYCARDIA [None]
